FAERS Safety Report 17925402 (Version 1)
Quarter: 2020Q2

REPORT INFORMATION
  Report Type: Spontaneous
  Country: DE (occurrence: DE)
  Receive Date: 20200623
  Receipt Date: 20200623
  Transmission Date: 20200714
  Serious: Yes (Hospitalization)
  Sender: FDA-Public Use
  Company Number: DE-TEVA-2020-DE-1789120

PATIENT
  Age: 83 Year
  Sex: Female

DRUGS (12)
  1. TORASEMID [Suspect]
     Active Substance: TORSEMIDE
     Dosage: 20 MILLIGRAM DAILY; 1-1-0-0
     Route: 048
  2. HUMINSULIN NORMAL KWIKPEN 100I.E./ML 3ML [Concomitant]
     Dosage: 100 IU / ML, 18-0-12-0,
     Route: 058
  3. ELIQUIS [Suspect]
     Active Substance: APIXABAN
     Dosage: 5 MILLIGRAM DAILY; 1-0-1-0,
     Route: 048
  4. DIGITOXIN [Concomitant]
     Active Substance: DIGITOXIN
     Dosage: .07 MILLIGRAM DAILY; 1-0-0-0,
     Route: 048
  5. HUMINSULIN BASAL KWIKPEN 300I.E. 100I.E./ML [Concomitant]
     Dosage: 100 IU / ML, 0-0-30-0, AMPOULES
     Route: 058
  6. METFORMIN [Concomitant]
     Active Substance: METFORMIN HYDROCHLORIDE
     Dosage: 1000 MILLIGRAM DAILY; 1-0-1-0
     Route: 048
  7. HCT [Suspect]
     Active Substance: HYDROCHLOROTHIAZIDE
     Dosage: 12.5 MILLIGRAM DAILY; 1-0-0-0
     Route: 048
  8. FEBUXOSTAT. [Suspect]
     Active Substance: FEBUXOSTAT
     Dosage: 80 MILLIGRAM DAILY; 1-0-0-0
     Route: 048
  9. METOPROLOL. [Concomitant]
     Active Substance: METOPROLOL
     Dosage: 1 DOSAGE FORMS DAILY; 23.75 MG, 0.5-0-0.5-0,
     Route: 048
  10. AMLODIPIN [Concomitant]
     Active Substance: AMLODIPINE BESYLATE
     Dosage: 5 MILLIGRAM DAILY; 1-0-0-0
     Route: 048
  11. RAMIPRIL. [Suspect]
     Active Substance: RAMIPRIL
     Dosage: 10 MILLIGRAM DAILY; 1-0-1-0
     Route: 048
  12. OMEPRAZOL [Concomitant]
     Active Substance: OMEPRAZOLE
     Dosage: 20 MILLIGRAM DAILY; 1-0-0-0
     Route: 048

REACTIONS (5)
  - Haematochezia [Unknown]
  - Thirst [Unknown]
  - Product prescribing error [Unknown]
  - Weight decreased [Unknown]
  - Dehydration [Unknown]
